FAERS Safety Report 8048827-1 (Version None)
Quarter: 2011Q4

REPORT INFORMATION
  Report Type: 
  Country: None (occurrence: None)
  Receive Date: 20111209
  Receipt Date: 20110720
  Transmission Date: 20120403
  Serious: No
  Sender: FDA-Public Use
  Company Number: 2011SP035279

PATIENT
  Sex: Male

DRUGS (4)
  1. REBETOL [Suspect]
     Indication: PRODUCT USED FOR UNKNOWN INDICATION
  2. VICTRELIS [Suspect]
     Indication: HEPATITIS C
     Dosage: 200 MG; QID; PO
     Route: 048
     Dates: start: 20110101
  3. PEG-INTRON [Suspect]
     Indication: PRODUCT USED FOR UNKNOWN INDICATION
  4. VICODIN [Concomitant]

REACTIONS (6)
  - HYPOTENSION [None]
  - MUSCULOSKELETAL PAIN [None]
  - DYSGEUSIA [None]
  - FATIGUE [None]
  - ASTHENIA [None]
  - LOSS OF LIBIDO [None]
